FAERS Safety Report 4527865-7 (Version None)
Quarter: 2004Q4

REPORT INFORMATION
  Report Type: 
  Country: None (occurrence: None)
  Receive Date: 20041123
  Receipt Date: 20040621
  Transmission Date: 20050328
  Serious: Yes (Other)
  Sender: FDA-Public Use
  Company Number: HQWYE537021JUN04

PATIENT
  Sex: Male

DRUGS (1)
  1. ZOSYN [Suspect]

REACTIONS (1)
  - HYPERSENSITIVITY [None]
